FAERS Safety Report 7375913-1 (Version None)
Quarter: 2011Q1

REPORT INFORMATION
  Report Type: 
  Country: None (occurrence: None)
  Receive Date: 20110325
  Receipt Date: 20110317
  Transmission Date: 20110831
  Serious: Yes (Other)
  Sender: FDA-Public Use
  Company Number: B0707950A

PATIENT
  Age: 30 Year
  Sex: Male

DRUGS (1)
  1. WELLBUTRIN [Suspect]
     Dosage: 150MG PER DAY
     Route: 065

REACTIONS (2)
  - ANXIETY [None]
  - CONVERSION DISORDER [None]
